FAERS Safety Report 5379268-3 (Version None)
Quarter: 2007Q3

REPORT INFORMATION
  Report Type: 
  Country: None (occurrence: None)
  Receive Date: 20070705
  Receipt Date: 20070621
  Transmission Date: 20080115
  Serious: Yes (Hospitalization)
  Sender: FDA-Public Use
  Company Number: KR-ELI_LILLY_AND_COMPANY-KR200705004670

PATIENT
  Age: 60 Year
  Sex: Male

DRUGS (4)
  1. HUMALOG [Suspect]
     Indication: DIABETES MELLITUS
     Dosage: 20 IU, NOON
     Route: 058
     Dates: start: 20040101, end: 20070501
  2. HUMALOG [Suspect]
     Dosage: 20 IU, EACH EVENING
     Route: 058
     Dates: start: 20040101, end: 20070501
  3. HUMALOG [Suspect]
     Dosage: 15 IU, EACH MORNING
     Route: 058
     Dates: start: 20040101, end: 20070501
  4. CHEMOTHERAPEUTICS NOS [Concomitant]
     Indication: ABDOMINAL MASS

REACTIONS (2)
  - ABDOMINAL MASS [None]
  - PYREXIA [None]
